FAERS Safety Report 4620990-1 (Version None)
Quarter: 2005Q2

REPORT INFORMATION
  Report Type: 
  Country: None (occurrence: None)
  Receive Date: 20050318
  Receipt Date: 20050202
  Transmission Date: 20051028
  Serious: Yes (Other)
  Sender: FDA-Public Use
  Company Number: 2005024944

PATIENT
  Age: 40 Year
  Sex: Female
  Weight: 81 kg

DRUGS (5)
  1. VORICONAZOLE (VORICONAZOLE) [Suspect]
     Indication: FEBRILE NEUTROPENIA
     Dosage: 980 MG (490 MG, 2 IN 1 D), INTRAVENOUS; 654 MG (327 MG, 2 IN 1 D), INTRAVENOUS
     Route: 042
     Dates: start: 20041106, end: 20041107
  2. VORICONAZOLE (VORICONAZOLE) [Suspect]
     Indication: FEBRILE NEUTROPENIA
     Dosage: 980 MG (490 MG, 2 IN 1 D), INTRAVENOUS; 654 MG (327 MG, 2 IN 1 D), INTRAVENOUS
     Route: 042
     Dates: start: 20041107, end: 20041111
  3. LANSOPRAZOLE [Concomitant]
  4. MEROPENEM (MEROPENEM) [Concomitant]
  5. ALL OTHER THERAPEUTIC PRODUCTS (ALL OTHER THERAPEUTIC PRODUCTS) [Concomitant]

REACTIONS (2)
  - NIGHTMARE [None]
  - VISUAL DISTURBANCE [None]
